FAERS Safety Report 8222917-2 (Version None)
Quarter: 2012Q1

REPORT INFORMATION
  Report Type: 
  Country: None (occurrence: None)
  Receive Date: 20120320
  Receipt Date: 20120313
  Transmission Date: 20120608
  Serious: Yes (Hospitalization)
  Sender: FDA-Public Use
  Company Number: PHHY2012GB021783

PATIENT
  Age: 78 Year
  Sex: Female

DRUGS (15)
  1. LEVOFLOXACIN [Suspect]
     Indication: PNEUMONIA
     Route: 048
     Dates: start: 20120216, end: 20120226
  2. TRAMADOL HCL [Concomitant]
  3. PREDNISOLONE [Suspect]
     Dosage: UNK
     Route: 048
     Dates: start: 20120216, end: 20120226
  4. IBUPROFEN [Concomitant]
  5. ALBUTEROL [Concomitant]
  6. SIMVASTATIN [Concomitant]
  7. LISINOPRIL [Concomitant]
  8. TOLTERODINE TARTRATE [Concomitant]
  9. HYDROXYZINE [Concomitant]
  10. LERCANIDIPINE [Concomitant]
  11. TIOTROPIUM BROMIDE [Concomitant]
  12. CALCIUM CARBONATE [Concomitant]
  13. ISPAGHULA HUSK [Concomitant]
  14. ACETAMINOPHEN [Concomitant]
  15. QUININE SULFATE [Concomitant]

REACTIONS (1)
  - TENDON RUPTURE [None]
